FAERS Safety Report 7645338-X (Version None)
Quarter: 2011Q3

REPORT INFORMATION
  Report Type: 
  Country: None (occurrence: None)
  Receive Date: 20110729
  Receipt Date: 20110720
  Transmission Date: 20111222
  Serious: Yes (Other)
  Sender: FDA-Public Use
  Company Number: PT-PFIZER INC-2009264676

PATIENT
  Age: 72 Year
  Sex: Female
  Weight: 65 kg

DRUGS (7)
  1. TRYPTIZOL [Concomitant]
     Dosage: 25 MG, 1X/DAY
     Route: 048
  2. DORMONOCT [Concomitant]
     Indication: INSOMNIA
     Dosage: 1 MG, 1X/DAY
     Route: 048
  3. GLUCOBAY [Concomitant]
     Indication: DIABETES MELLITUS
     Dosage: 50 MG, 3X/DAY
     Route: 048
  4. RISIDON [Concomitant]
     Indication: DIABETES MELLITUS
     Dosage: 1000 MG, 1X/DAY
     Route: 048
  5. DIAMICRON LM [Concomitant]
     Indication: DIABETES MELLITUS
     Dosage: 30 MG, 1X/DAY
  6. IBRUPROFEN [Concomitant]
     Dosage: 600 MG, AS NEEDED
     Route: 048
  7. NEURONTIN [Suspect]
     Dosage: 600 MG, 3X/DAY
     Route: 048
     Dates: start: 20090805, end: 20090808

REACTIONS (9)
  - COORDINATION ABNORMAL [None]
  - HEART RATE INCREASED [None]
  - PANCREATITIS [None]
  - CONFUSIONAL STATE [None]
  - DIPLOPIA [None]
  - DYSKINESIA [None]
  - INSOMNIA [None]
  - BLOOD GLUCOSE FLUCTUATION [None]
  - INNER EAR DISORDER [None]
